FAERS Safety Report 14851111 (Version 3)
Quarter: 2018Q4

REPORT INFORMATION
  Report Type: Spontaneous
  Country: US (occurrence: US)
  Receive Date: 20180507
  Receipt Date: 20181219
  Transmission Date: 20190204
  Serious: No
  Sender: FDA-Public Use
  Company Number: US-CELGENEUS-USA-20180500335

PATIENT
  Sex: Male

DRUGS (1)
  1. OTEZLA [Suspect]
     Active Substance: APREMILAST
     Indication: PSORIASIS
     Dosage: 60 MILLIGRAM
     Route: 048
     Dates: start: 20180404, end: 20180525

REACTIONS (4)
  - Dizziness [Recovered/Resolved]
  - Blood pressure increased [Not Recovered/Not Resolved]
  - Headache [Recovered/Resolved]
  - Malaise [Unknown]

NARRATIVE: CASE EVENT DATE: 2018
